FAERS Safety Report 21123710 (Version 1)
Quarter: 2022Q3

REPORT INFORMATION
  Report Type: Report from Study
  Country: US (occurrence: US)
  Receive Date: 20220725
  Receipt Date: 20220725
  Transmission Date: 20221027
  Serious: Yes (Hospitalization, Other)
  Sender: FDA-Public Use
  Company Number: US-SUN PHARMACEUTICAL INDUSTRIES LTD-2022R1-345065

PATIENT
  Age: 59 Year
  Sex: Male

DRUGS (3)
  1. OXALIPLATIN [Suspect]
     Active Substance: OXALIPLATIN
     Indication: Product used for unknown indication
     Dosage: 10 ML OF BAG 1 (1% OF THE TOTAL DOSE) OVER THE FIRST HOUR
     Route: 065
  2. OXALIPLATIN [Suspect]
     Active Substance: OXALIPLATIN
     Dosage: 90 ML OF BAG 1 (9% OF THE TOTAL DOSE) OVER 2 HOURS
     Route: 065
  3. OXALIPLATIN [Suspect]
     Active Substance: OXALIPLATIN
     Dosage: BAG 2 OVER 3 HOURS
     Route: 065

REACTIONS (6)
  - Hypersensitivity [Unknown]
  - Haemolysis [Unknown]
  - Immune thrombocytopenia [Unknown]
  - Haematuria [Unknown]
  - Dyspnoea [Unknown]
  - Chills [Unknown]
